FAERS Safety Report 8174245-1 (Version None)
Quarter: 2012Q1

REPORT INFORMATION
  Report Type: 
  Country: None (occurrence: None)
  Receive Date: 20120224
  Receipt Date: 20120206
  Transmission Date: 20120608
  Serious: Yes (Death, Hospitalization)
  Sender: FDA-Public Use
  Company Number: 2012AP000385

PATIENT
  Age: 78 Year
  Sex: Female

DRUGS (6)
  1. GLIPIZIDE [Concomitant]
  2. IBUPROFEN [Suspect]
     Indication: BONE PAIN
     Dosage: 600 MG;Q8H
  3. LERCANIDIPINE [Concomitant]
  4. METFORMIN HCL [Suspect]
     Indication: PRODUCT USED FOR UNKNOWN INDICATION
     Dosage: 850 MG;Q8H
  5. ZESTORETIC [Suspect]
     Indication: PRODUCT USED FOR UNKNOWN INDICATION
  6. ACENOCOUMAROL (ACENOCOUMAROL) [Concomitant]

REACTIONS (9)
  - LACTIC ACIDOSIS [None]
  - COMA [None]
  - GENERAL PHYSICAL HEALTH DETERIORATION [None]
  - COAGULOPATHY [None]
  - BLOOD GLUCOSE INCREASED [None]
  - BLOOD POTASSIUM INCREASED [None]
  - MENINGITIS PNEUMOCOCCAL [None]
  - HYPOTENSION [None]
  - HAEMODIALYSIS [None]
